FAERS Safety Report 16762387 (Version 1)
Quarter: 2019Q3

REPORT INFORMATION
  Report Type: Spontaneous
  Country: RO (occurrence: RO)
  Receive Date: 20190831
  Receipt Date: 20190831
  Transmission Date: 20191005
  Serious: Yes (Other)
  Sender: FDA-Public Use
  Company Number: RO-MACLEODS PHARMACEUTICALS US LTD-MAC2019022850

PATIENT

DRUGS (1)
  1. CLOBETASOL 0.05 % W/W [Suspect]
     Active Substance: CLOBETASOL
     Indication: LICHEN SCLEROSUS
     Dosage: UNK, CREAM
     Route: 061

REACTIONS (1)
  - Skin haemorrhage [Unknown]
